FAERS Safety Report 7906118-0 (Version None)
Quarter: 2011Q4

REPORT INFORMATION
  Report Type: 
  Country: None (occurrence: None)
  Receive Date: 20111110
  Receipt Date: 20111104
  Transmission Date: 20120403
  Serious: No
  Sender: FDA-Public Use
  Company Number: US-PFIZER INC-2011271513

PATIENT

DRUGS (10)
  1. DYAZIDE [Concomitant]
     Dosage: 375/25, 1X/DAY
  2. FLONASE [Concomitant]
     Dosage: 0.05 %, 1X/DAY
  3. AMPICILLIN [Suspect]
     Dosage: UNK
  4. ALLEGRA [Concomitant]
     Dosage: 180 MG, 1X/DAY
  5. CALCIUM CARBONATE/COLECALCIFEROL [Concomitant]
     Dosage: UNK, 1X/DAY
  6. PENICILLIN G PROCAINE [Suspect]
     Dosage: UNK
  7. KEFLEX [Suspect]
     Dosage: UNK
  8. TOPROL-XL [Concomitant]
     Dosage: 50 MG, 1X/DAY
  9. SIMVASTATIN [Concomitant]
     Dosage: 20 MG, 1X/DAY
  10. CENTRUM SILVER [Concomitant]
     Dosage: UNK, 1X/DAY

REACTIONS (1)
  - HYPERSENSITIVITY [None]
